FAERS Safety Report 5875317-4 (Version None)
Quarter: 2008Q3

REPORT INFORMATION
  Report Type: 
  Country: None (occurrence: None)
  Receive Date: 20080909
  Receipt Date: 20080904
  Transmission Date: 20090109
  Serious: Yes (Hospitalization, Other)
  Sender: FDA-Public Use
  Company Number: GB-BRISTOL-MYERS SQUIBB COMPANY-14327480

PATIENT
  Age: 30 Year
  Sex: Male

DRUGS (1)
  1. MITOMYCIN [Suspect]
     Indication: BLADDER CANCER
     Dosage: MITOMYCIN INJECTION
     Route: 040
     Dates: start: 20080101, end: 20080101

REACTIONS (3)
  - ABSCESS [None]
  - BLADDER FIBROSIS [None]
  - BLADDER PERFORATION [None]
